FAERS Safety Report 10573370 (Version 1)
Quarter: 2014Q4

REPORT INFORMATION
  Report Type: Spontaneous
  Country: US (occurrence: None)
  Receive Date: 20141030
  Receipt Date: 20141030
  Transmission Date: 20150529
  Serious: Yes (Other)
  Sender: FDA-Public Use
  Company Number: PHEH2014US017121

PATIENT
  Age: 54 Year
  Sex: Female
  Weight: 65.8 kg

DRUGS (13)
  1. REBIF [Suspect]
     Active Substance: INTERFERON BETA-1A
     Indication: MULTIPLE SCLEROSIS
     Dosage: UNK, UKN, QAM(INJECTION NOS)
     Dates: start: 20140317, end: 20140317
  2. SYNTHROID [Concomitant]
     Active Substance: LEVOTHYROXINE SODIUM
  3. NEURONTIN(GABAPENTIN) [Concomitant]
  4. VITAMIN B12(CYANOCOBALMAIN) [Concomitant]
  5. OXYCARBAZEPINE [Suspect]
     Active Substance: OXCARBAZEPINE
     Indication: TRIGEMINAL NEURALGIA
     Route: 048
     Dates: start: 201403
  6. PHENERGAN(CEPHAELIS SPP. FLUID EXTRACT, CHLOROFORM, CITRIC ACID, DEXTROMETHORPHAN HYDROCROMIDE, PROMETHAZINE HYDROCHLORIDE, SODIUM CITRATE, SULFOGAICOL) [Concomitant]
  7. AMANTADINE HCL(AMANTADINE HYDROCHLORIDE) [Concomitant]
  8. AMPYRA [Suspect]
     Active Substance: DALFAMPRIDINE
     Indication: MULTIPLE SCLEROSIS
     Dosage: 1 DF, BID, ORAL
     Route: 048
     Dates: start: 201403, end: 20140731
  9. VITAMIN D (ERGOCALCIFEROL) [Concomitant]
     Active Substance: ERGOCALCIFEROL
  10. DIMETHYL FUMARATE [Suspect]
     Active Substance: DIMETHYL FUMARATE
     Indication: MULTIPLE SCLEROSIS
     Route: 048
     Dates: start: 2014, end: 2014
  11. BACLOFEN. [Concomitant]
     Active Substance: BACLOFEN
  12. CLONAZEPAM(CLONAZEPAM) [Concomitant]
  13. RESTASIS (CICLOSPORIN) [Concomitant]

REACTIONS (4)
  - Rash [None]
  - Skin discolouration [None]
  - Contusion [None]
  - Trigeminal neuralgia [None]

NARRATIVE: CASE EVENT DATE: 20140317
